FAERS Safety Report 11391557 (Version 1)
Quarter: 2015Q3

REPORT INFORMATION
  Report Type: Spontaneous
  Country: CA (occurrence: CA)
  Receive Date: 20150818
  Receipt Date: 20150818
  Transmission Date: 20151125
  Serious: Yes (Other)
  Sender: FDA-Public Use
  Company Number: CA-TEVA-586859ACC

PATIENT
  Sex: Female

DRUGS (1)
  1. TEVA-TERBINAFINE [Suspect]
     Active Substance: TERBINAFINE
     Indication: ONYCHOMYCOSIS
     Dosage: 1 DOSAGE FORMS DAILY;
     Route: 065

REACTIONS (7)
  - Face oedema [Recovered/Resolved]
  - Pharyngeal oedema [Recovered/Resolved]
  - Abdominal pain [Recovered/Resolved]
  - Head discomfort [Recovered/Resolved]
  - Nausea [Recovered/Resolved]
  - Hepatic enzyme increased [Recovered/Resolved]
  - Oropharyngeal pain [Recovered/Resolved]
